FAERS Safety Report 24449061 (Version 2)
Quarter: 2024Q4

REPORT INFORMATION
  Report Type: Spontaneous
  Country: DE (occurrence: DE)
  Receive Date: 20241017
  Receipt Date: 20241122
  Transmission Date: 20250115
  Serious: Yes (Other)
  Sender: TEVA
  Company Number: DE-TEVA-VS-3247399

PATIENT
  Sex: Female

DRUGS (2)
  1. COPAXONE [Suspect]
     Active Substance: GLATIRAMER ACETATE
     Indication: Product used for unknown indication
     Dosage: TIME INTERVAL: 0.33333333 WEEKS: DOSAGE: 40 MG/ML PEN 40 MG INJEKTIONSL?SUNG IM FERTIGPEN
     Route: 065
  2. COPAXONE [Suspect]
     Active Substance: GLATIRAMER ACETATE
     Indication: Product used for unknown indication
     Route: 065

REACTIONS (3)
  - Osteoporosis [Unknown]
  - Injection site atrophy [Unknown]
  - Lack of injection site rotation [Unknown]
